FAERS Safety Report 5737478-7 (Version None)
Quarter: 2008Q2

REPORT INFORMATION
  Report Type: 
  Country: None (occurrence: None)
  Receive Date: 20080514
  Receipt Date: 20080507
  Transmission Date: 20081010
  Serious: Yes (Congenital Anomaly)
  Sender: FDA-Public Use
  Company Number: GB-ABBOTT-08P-167-0450948-00

PATIENT
  Age: 1 Day
  Sex: Female

DRUGS (1)
  1. VALPROATE SODIUM [Suspect]
     Indication: DRUG EXPOSURE DURING PREGNANCY
     Route: 064

REACTIONS (27)
  - ABNORMAL BEHAVIOUR [None]
  - AGGRESSION [None]
  - ANGER [None]
  - CAFE AU LAIT SPOTS [None]
  - CEREBRAL PALSY [None]
  - CONGENITAL EYELID MALFORMATION [None]
  - CONGENITAL HAIR DISORDER [None]
  - CONGENITAL NOSE MALFORMATION [None]
  - DEVELOPMENTAL DELAY [None]
  - DRUG EXPOSURE DURING PREGNANCY [None]
  - DYSMORPHISM [None]
  - EAR INFECTION [None]
  - FEEDING DISORDER NEONATAL [None]
  - FEMORAL ANTEVERSION [None]
  - FOETAL ANTICONVULSANT SYNDROME [None]
  - FOOT DEFORMITY [None]
  - HYPERMETROPIA [None]
  - HYPERTELORISM OF ORBIT [None]
  - HYPOTONIA [None]
  - JAUNDICE [None]
  - LIGAMENT LAXITY [None]
  - LIP DISORDER [None]
  - MOVEMENT DISORDER [None]
  - NUCLEAR MAGNETIC RESONANCE IMAGING ABNORMAL [None]
  - POOR SUCKING REFLEX [None]
  - PREMATURE BABY [None]
  - SKULL MALFORMATION [None]
